FAERS Safety Report 25107539 (Version 1)
Quarter: 2025Q1

REPORT INFORMATION
  Report Type: Spontaneous
  Country: FR (occurrence: FR)
  Receive Date: 20250321
  Receipt Date: 20250321
  Transmission Date: 20250409
  Serious: Yes (Death)
  Sender: PRINSTON PHARMACEUTICAL
  Company Number: FR-PRINSTON PHARMACEUTICAL INC.-2025PRN00077

PATIENT
  Age: 63 Year
  Sex: Male

DRUGS (1)
  1. DULOXETINE [Suspect]
     Active Substance: DULOXETINE

REACTIONS (3)
  - Bezoar [Fatal]
  - Toxicity to various agents [Fatal]
  - Completed suicide [Fatal]
